FAERS Safety Report 6941673-9 (Version None)
Quarter: 2010Q3

REPORT INFORMATION
  Report Type: 
  Country: None (occurrence: None)
  Receive Date: 20100826
  Receipt Date: 20100824
  Transmission Date: 20110219
  Serious: Yes (Other)
  Sender: FDA-Public Use
  Company Number: US-ASTRAZENECA-2010SE39808

PATIENT
  Age: 653 Month
  Sex: Female

DRUGS (17)
  1. SEROQUEL [Suspect]
     Route: 048
     Dates: start: 20060803
  2. ISOSORB MONO/IMDUR [Concomitant]
     Dates: start: 20060803, end: 20061201
  3. SKELAXIN [Concomitant]
     Dosage: 800 Q8H PRN
     Dates: start: 20060505
  4. CAPTOPRIL [Concomitant]
     Dates: start: 20060705
  5. CLONIDINE [Concomitant]
     Dates: start: 20060705
  6. ATENOLOL [Concomitant]
     Dates: start: 20060505
  7. NABUMETONE [Concomitant]
     Dates: start: 20060724
  8. DEPAKOTE [Concomitant]
     Dosage: 250 MG DR TAB DISPENSED
     Dates: start: 20060803
  9. ZOLOFT [Concomitant]
     Dates: start: 20060803
  10. TRAZODONE HCL [Concomitant]
     Dates: start: 20061201
  11. ENALAPRIL [Concomitant]
     Dates: start: 20070417
  12. HYDRALAZINE [Concomitant]
     Dates: start: 20070417
  13. LORTAB [Concomitant]
     Dosage: 10 PRN
     Dates: start: 20060505
  14. CELEBREX [Concomitant]
     Dosage: 200 BID
     Dates: start: 20060505
  15. HYDROCHLOROTHIAZIDE [Concomitant]
     Dates: start: 20070501
  16. STEROID INJECTIONS [Concomitant]
     Dates: start: 20070401
  17. AVODART [Concomitant]
     Dosage: 2/500 BID
     Dates: start: 20070501

REACTIONS (8)
  - GALLBLADDER DISORDER [None]
  - HEADACHE [None]
  - HYPERLIPIDAEMIA [None]
  - HYPERTENSION [None]
  - INTERVERTEBRAL DISC DEGENERATION [None]
  - MYOCARDIAL ISCHAEMIA [None]
  - OSTEOARTHRITIS [None]
  - TYPE 2 DIABETES MELLITUS [None]
